FAERS Safety Report 7983553-6 (Version None)
Quarter: 2011Q4

REPORT INFORMATION
  Report Type: 
  Country: None (occurrence: None)
  Receive Date: 20111215
  Receipt Date: 20111208
  Transmission Date: 20120403
  Serious: Yes (Other)
  Sender: FDA-Public Use
  Company Number: DE-ALLERGAN-1116078US

PATIENT
  Age: 60 Year
  Sex: Female

DRUGS (2)
  1. OZURDEX [Suspect]
     Dosage: UNK
     Route: 047
     Dates: start: 20110817, end: 20110817
  2. OZURDEX [Suspect]
     Indication: MACULAR OEDEMA
     Dosage: UNK
     Route: 047
     Dates: start: 20101005, end: 20101005

REACTIONS (2)
  - VITREOUS HAEMORRHAGE [None]
  - INTRAOCULAR PRESSURE INCREASED [None]
